FAERS Safety Report 21956330 (Version 2)
Quarter: 2023Q4

REPORT INFORMATION
  Report Type: Spontaneous
  Country: RU (occurrence: None)
  Receive Date: 20230206
  Receipt Date: 20231016
  Transmission Date: 20240110
  Serious: Yes (Other)
  Sender: FDA-Public Use
  Company Number: RU-ROCHE-3272930

PATIENT
  Sex: Female

DRUGS (1)
  1. OCREVUS [Suspect]
     Active Substance: OCRELIZUMAB
     Indication: Multiple sclerosis
     Dosage: LAST DOSE ON /DEC/2019, RESUMPTION OF OCREVUS THERAPY ON 02/AUG/2021
     Route: 065
     Dates: start: 201812

REACTIONS (2)
  - Abortion spontaneous [Unknown]
  - Maternal exposure before pregnancy [Unknown]
